FAERS Safety Report 15311973 (Version 1)
Quarter: 2018Q3

REPORT INFORMATION
  Report Type: Report from Study
  Country: US (occurrence: US)
  Receive Date: 20180823
  Receipt Date: 20180823
  Transmission Date: 20181010
  Serious: Yes (Life-Threatening, Other)
  Sender: FDA-Public Use
  Company Number: US-ELI_LILLY_AND_COMPANY-US201808009674

PATIENT
  Sex: Male

DRUGS (1)
  1. IXEKIZUMAB [Suspect]
     Active Substance: IXEKIZUMAB
     Indication: PSORIASIS
     Dosage: 80 MG, UNKNOWN
     Route: 058
     Dates: start: 2017, end: 201801

REACTIONS (10)
  - Swelling face [Recovered/Resolved]
  - Ear swelling [Recovered/Resolved]
  - Pharyngeal oedema [Recovered/Resolved]
  - Swelling [Recovered/Resolved]
  - Skin exfoliation [Recovered/Resolved]
  - Eye swelling [Recovered/Resolved]
  - Skin wound [Recovered/Resolved]
  - Skin wrinkling [Recovered/Resolved]
  - Alopecia [Recovered/Resolved]
  - Cardiac disorder [Recovered/Resolved]
